FAERS Safety Report 18898771 (Version 3)
Quarter: 2021Q1

REPORT INFORMATION
  Report Type: Spontaneous
  Country: JP (occurrence: JP)
  Receive Date: 20210216
  Receipt Date: 20210326
  Transmission Date: 20210420
  Serious: No
  Sender: FDA-Public Use
  Company Number: JP-ASTRAZENECA-2021A051440

PATIENT

DRUGS (1)
  1. SYMBICORT [Suspect]
     Active Substance: BUDESONIDE\FORMOTEROL FUMARATE DIHYDRATE
     Dosage: 30 DOSES, DOSE AND FREQUENCY UNKNOWN UNKNOWN
     Route: 055

REACTIONS (1)
  - Muscle spasms [Unknown]
